FAERS Safety Report 4313661-2 (Version None)
Quarter: 2004Q1

REPORT INFORMATION
  Report Type: 
  Country: None (occurrence: None)
  Receive Date: 20040308
  Receipt Date: 20030923
  Transmission Date: 20041129
  Serious: Yes (Other)
  Sender: FDA-Public Use
  Company Number: PHNU2003DE03498

PATIENT
  Sex: Male

DRUGS (3)
  1. TEGRETOL-XR [Suspect]
     Indication: PSYCHOTIC DISORDER
     Dosage: 400 MG, BID
     Route: 048
     Dates: start: 19980101
  2. SOLIAN [Concomitant]
     Route: 065
     Dates: start: 20030101
  3. CITALOPRAM [Concomitant]
     Dosage: UNK, UNK
     Route: 065
     Dates: start: 20020101

REACTIONS (2)
  - PERIODONTITIS [None]
  - TOOTH LOSS [None]
